FAERS Safety Report 24977624 (Version 1)
Quarter: 2025Q1

REPORT INFORMATION
  Report Type: Report from Study
  Country: KW (occurrence: KW)
  Receive Date: 20250217
  Receipt Date: 20250217
  Transmission Date: 20250408
  Serious: Yes (Other)
  Sender: SANDOZ
  Company Number: KW-SANDOZ-SDZ2025KW009021

PATIENT
  Age: 45 Year
  Sex: Female

DRUGS (1)
  1. HYRIMOZ [Suspect]
     Active Substance: ADALIMUMAB-ADAZ
     Indication: Rheumatoid arthritis
     Dosage: 40 MG Q2W
     Route: 058
     Dates: start: 2024, end: 20240918

REACTIONS (3)
  - Immunodeficiency [Not Recovered/Not Resolved]
  - Osteoporosis [Not Recovered/Not Resolved]
  - Weight decreased [Not Recovered/Not Resolved]

NARRATIVE: CASE EVENT DATE: 20240918
